FAERS Safety Report 6291834-X (Version None)
Quarter: 2009Q3

REPORT INFORMATION
  Report Type: 
  Country: None (occurrence: None)
  Receive Date: 20090730
  Receipt Date: 20090715
  Transmission Date: 20100115
  Serious: Yes (Death, Hospitalization)
  Sender: FDA-Public Use
  Company Number: DE-GENENTECH-287020

PATIENT
  Sex: Male

DRUGS (4)
  1. MABTHERA [Suspect]
     Indication: B-CELL LYMPHOMA
     Dosage: 375 MG/M2, Q28D
     Route: 042
     Dates: start: 20090114, end: 20090403
  2. BENDAMUSTINE [Suspect]
     Indication: B-CELL LYMPHOMA
     Dosage: 180 MG/M2, Q28D
     Route: 042
     Dates: start: 20090114, end: 20090404
  3. ASPIRIN [Concomitant]
     Indication: CEREBROVASCULAR ACCIDENT
     Dosage: 100 MG, BID
     Route: 048
  4. BISOPROLOL [Concomitant]
     Indication: HYPERTENSION
     Dosage: 5 MG, BID
     Route: 048

REACTIONS (2)
  - HEPATIC FAILURE [None]
  - HEPATITIS B [None]
